FAERS Safety Report 6016153-8 (Version None)
Quarter: 2008Q4

REPORT INFORMATION
  Report Type: 
  Country: None (occurrence: None)
  Receive Date: 20081216
  Receipt Date: 20080303
  Transmission Date: 20090506
  Serious: Yes (Hospitalization)
  Sender: FDA-Public Use
  Company Number: US-WYE-H02903208

PATIENT
  Age: 32 Year
  Sex: Female
  Weight: 63.56 kg

DRUGS (2)
  1. EFFEXOR XR [Suspect]
     Indication: DEPRESSION
     Dosage: 150 MG 1X PER 1 DAY, ORAL
     Route: 048
     Dates: start: 20071101
  2. METHOTREXATE [Concomitant]

REACTIONS (1)
  - PULMONARY EMBOLISM [None]
